FAERS Safety Report 4697763-7 (Version None)
Quarter: 2005Q2

REPORT INFORMATION
  Report Type: 
  Country: None (occurrence: None)
  Receive Date: 20050119
  Receipt Date: 20050119
  Transmission Date: 20051028
  Serious: No
  Sender: FDA-Public Use
  Company Number: None

PATIENT
  Sex: Female
  Weight: 63.05 kg

DRUGS (2)
  1. SKELAXIN [Suspect]
     Indication: BACK PAIN
     Dosage: 800MG  TID
     Dates: start: 20000101, end: 20000601
  2. CYCLOBENZAPRINE HCL [Suspect]
     Indication: BACK PAIN
     Dosage: 10MG  TID  EACH TIME TRIED

REACTIONS (1)
  - DRUG EFFECT DECREASED [None]
